FAERS Safety Report 9639211 (Version 2)
Quarter: 2013Q4

REPORT INFORMATION
  Report Type: Report from Study
  Country: HN (occurrence: HN)
  Receive Date: 20131022
  Receipt Date: 20131028
  Transmission Date: 20140711
  Serious: Yes (Death)
  Sender: FDA-Public Use
  Company Number: HN-ROCHE-1288320

PATIENT
  Age: 84 Year
  Sex: Female

DRUGS (3)
  1. BONVIVA [Suspect]
     Indication: OSTEOPOROSIS
     Route: 048
     Dates: start: 20110612, end: 20130913
  2. CALTRATE [Concomitant]
  3. PARACETAMOL/TRAMADOL HYDROCHLORIDE [Concomitant]

REACTIONS (5)
  - Death [Fatal]
  - Hypotension [Unknown]
  - Fall [Unknown]
  - Abdominal distension [Unknown]
  - Local swelling [Unknown]
